FAERS Safety Report 8809707 (Version 1)
Quarter: 2012Q4

REPORT INFORMATION
  Report Type: 
  Country: US (occurrence: US)
  Receive Date: 20120926
  Receipt Date: 20120926
  Transmission Date: 20130627
  Serious: No
  Sender: FDA-Public Use
  Company Number: US-B.I. PHARMACEUTICALS,INC./RIDGEFIELD-2012-BP-23311BP

PATIENT
  Age: 60 Year
  Sex: Female

DRUGS (7)
  1. PRADAXA [Suspect]
     Indication: ATRIAL FIBRILLATION
     Dosage: 300 mg
     Route: 048
     Dates: start: 20120921
  2. ASPIRIN [Concomitant]
     Indication: ANTICOAGULANT THERAPY
     Dosage: 81 mg
     Route: 048
  3. LIPITOR [Concomitant]
     Indication: BLOOD CHOLESTEROL INCREASED
     Dosage: 40 mg
     Route: 048
  4. ISOSORBIDE [Concomitant]
     Indication: HYPERTENSION
     Dosage: 30 mg
     Route: 048
  5. ALTACE [Concomitant]
     Indication: HYPERTENSION
     Dosage: 2.5 mg
     Route: 048
  6. METOPROLOL [Concomitant]
     Indication: HYPERTENSION
     Dosage: 50 mg
     Route: 048
  7. FLEXERIL [Concomitant]
     Indication: PAIN
     Route: 048

REACTIONS (1)
  - Abdominal distension [Not Recovered/Not Resolved]
